FAERS Safety Report 17148489 (Version 2)
Quarter: 2020Q3

REPORT INFORMATION
  Report Type: Spontaneous
  Country: MY (occurrence: MY)
  Receive Date: 20191212
  Receipt Date: 20200727
  Transmission Date: 20201102
  Serious: Yes (Other)
  Sender: FDA-Public Use
  Company Number: MY-SUN PHARMACEUTICAL INDUSTRIES LTD-2019R1-230495

PATIENT
  Age: 78 Year
  Sex: Female

DRUGS (1)
  1. DEMEALRAN [Suspect]
     Active Substance: DONEPEZIL HYDROCHLORIDE
     Indication: DEMENTIA
     Dosage: 10 MILLIGRAM, DAILY
     Route: 048

REACTIONS (2)
  - Bradycardia [Recovered/Resolved]
  - Syncope [Recovered/Resolved]
